FAERS Safety Report 8738363 (Version 2)
Quarter: 2013Q4

REPORT INFORMATION
  Report Type: Spontaneous
  Country: FR (occurrence: FR)
  Receive Date: 20120823
  Receipt Date: 20131031
  Transmission Date: 20140711
  Serious: Yes (Hospitalization)
  Sender: FDA-Public Use
  Company Number: FR-009507513-1208FRA006769

PATIENT
  Age: 67 Year
  Sex: Male

DRUGS (6)
  1. INVANZ [Suspect]
     Indication: OSTEITIS
     Dosage: 1 G, BID
     Route: 042
     Dates: start: 20120601, end: 20120610
  2. TOPALGIC (TRAMADOL HYDROCHLORIDE) [Suspect]
     Indication: PAIN IN EXTREMITY
     Dosage: 100 MG, QD
     Route: 048
     Dates: start: 20120530, end: 20120608
  3. DITROPAN [Suspect]
     Indication: URINARY INCONTINENCE
     Dosage: 2.5 MG, UNK
     Route: 048
     Dates: start: 20120602, end: 20120608
  4. FLUCONAZOLE [Suspect]
     Indication: FUNGAL INFECTION
     Dosage: 100 MG, BID
     Route: 048
     Dates: start: 20120604, end: 20120610
  5. ZOLPIDEM TARTRATE [Suspect]
     Indication: INSOMNIA
     Dosage: 10 MG, QD
     Route: 048
     Dates: start: 20120521, end: 20120610
  6. BACTRIM [Concomitant]
     Route: 048

REACTIONS (4)
  - Confusional state [Recovered/Resolved]
  - Agitation [Recovered/Resolved]
  - Insomnia [Recovered/Resolved]
  - Hypokinesia [Recovered/Resolved]
